FAERS Safety Report 9471596 (Version 1)
Quarter: 2013Q3

REPORT INFORMATION
  Report Type: Spontaneous
  Country: IT (occurrence: None)
  Receive Date: 20130819
  Receipt Date: 20130819
  Transmission Date: 20140515
  Serious: Yes (Hospitalization)
  Sender: FDA-Public Use
  Company Number: B0915329A

PATIENT
  Age: 6 Year
  Sex: Male

DRUGS (6)
  1. CEFTRIAXONE [Suspect]
     Indication: PYREXIA
  2. BECLOMETHASONE DIPROPIONATE [Suspect]
     Indication: PYREXIA
  3. SALBUTAMOL [Suspect]
     Indication: PYREXIA
  4. BUDESONIDE [Suspect]
     Indication: PYREXIA
  5. CLARITHROMYCIN [Suspect]
     Indication: PYREXIA
  6. VALPROIC ACID [Suspect]
     Indication: EPILEPSY

REACTIONS (2)
  - Stevens-Johnson syndrome [None]
  - Upper respiratory tract infection [None]
